FAERS Safety Report 18947308 (Version 1)
Quarter: 2021Q1

REPORT INFORMATION
  Report Type: Spontaneous
  Country: CN (occurrence: CN)
  Receive Date: 20210227
  Receipt Date: 20210227
  Transmission Date: 20210420
  Serious: Yes (Other)
  Sender: FDA-Public Use
  Company Number: CN-ROCHE-2776092

PATIENT
  Age: 56 Year
  Sex: Male

DRUGS (10)
  1. TRASTUZUMAB. [Suspect]
     Active Substance: TRASTUZUMAB
     Indication: ADENOCARCINOMA OF COLON
     Dosage: 04/SEP/2020, 23/OCT/2020, 07/DEC/2020
     Route: 065
     Dates: start: 20200331
  2. OXALIPLATIN. [Concomitant]
     Active Substance: OXALIPLATIN
     Indication: ADENOCARCINOMA OF COLON
     Dosage: FOR 4 CYCELS
     Dates: start: 20191026, end: 20200110
  3. IRINOTECAN [Concomitant]
     Active Substance: IRINOTECAN
     Dates: start: 20200904
  4. IRINOTECAN [Concomitant]
     Active Substance: IRINOTECAN
     Indication: ADENOCARCINOMA OF COLON
     Dosage: FOR ONE CYCLE
     Dates: start: 20200312
  5. CAPECITABINE. [Concomitant]
     Active Substance: CAPECITABINE
     Indication: ADENOCARCINOMA OF COLON
     Dosage: FOR 4 CYCELS
     Dates: start: 20191026, end: 20200110
  6. CRIZOTINIB [Concomitant]
     Active Substance: CRIZOTINIB
     Indication: ADENOCARCINOMA OF COLON
     Dates: start: 20201023
  7. CABOZANTINIB [Concomitant]
     Active Substance: CABOZANTINIB
     Indication: ADENOCARCINOMA OF COLON
     Dates: start: 20201207
  8. CAPECITABINE. [Concomitant]
     Active Substance: CAPECITABINE
     Dosage: FOR ONE CYCLE
     Dates: start: 20200312
  9. PYROTINIB [Concomitant]
     Active Substance: PYROTINIB
     Indication: ADENOCARCINOMA OF COLON
     Dates: start: 20200331
  10. EVEROLIMUS. [Concomitant]
     Active Substance: EVEROLIMUS
     Indication: ADENOCARCINOMA OF COLON
     Dates: start: 20201207

REACTIONS (9)
  - Abdominal wall oedema [Unknown]
  - Inflammation [Unknown]
  - Off label use [Unknown]
  - Myelosuppression [Unknown]
  - Hypoproteinaemia [Unknown]
  - Intentional product use issue [Unknown]
  - Lung hypoinflation [Unknown]
  - Cystic lung disease [Unknown]
  - Pleural effusion [Unknown]
